FAERS Safety Report 9470380 (Version 2)
Quarter: 2013Q3

REPORT INFORMATION
  Report Type: Spontaneous
  Country: JP (occurrence: None)
  Receive Date: 20130815
  Receipt Date: 20130827
  Transmission Date: 20140515
  Serious: No
  Sender: FDA-Public Use
  Company Number: TPA2013A07600

PATIENT
  Age: 67 Year
  Sex: Male

DRUGS (5)
  1. FEBURIC (FEBUXOSTAT) [Suspect]
     Route: 048
     Dates: start: 20130117
  2. ALLELOCK [Suspect]
     Dosage: 10 MG, 1 IN 1 D
     Dates: start: 20130701
  3. VERSTATIN [Concomitant]
  4. MICARDIS [Concomitant]
  5. FLIVAS [Concomitant]

REACTIONS (1)
  - Eyelid oedema [None]
